FAERS Safety Report 9744527 (Version 2)
Quarter: 2013Q4

REPORT INFORMATION
  Report Type: Spontaneous
  Country: PR (occurrence: PR)
  Receive Date: 20131210
  Receipt Date: 20131210
  Transmission Date: 20140711
  Serious: No
  Sender: FDA-Public Use
  Company Number: PR-BAXTER-2013BAX045338

PATIENT
  Age: 19 Day
  Sex: Male
  Weight: 1.21 kg

DRUGS (6)
  1. 70% DEXTROSE INJECTION USP [Suspect]
     Indication: PARENTERAL NUTRITION
     Route: 065
  2. POTASSIUM CHLORIDE INJECTION [Suspect]
     Indication: PARENTERAL NUTRITION
     Route: 065
  3. 10% PREMASOL [Suspect]
     Indication: PARENTERAL NUTRITION
     Route: 065
  4. STERILE WATER FOR INJECTION [Suspect]
     Indication: PARENTERAL NUTRITION
     Route: 065
  5. CALCIUM GLUCONATE [Suspect]
     Indication: PARENTERAL NUTRITION
     Route: 065
  6. SODIUM CHLORIDE [Suspect]
     Indication: PARENTERAL NUTRITION
     Route: 065

REACTIONS (1)
  - Hypercalcaemia [Recovered/Resolved]
